FAERS Safety Report 20070261 (Version 1)
Quarter: 2021Q4

REPORT INFORMATION
  Report Type: Report from Study
  Country: US (occurrence: None)
  Receive Date: 20211115
  Receipt Date: 20211115
  Transmission Date: 20220303
  Serious: Yes (Death)
  Sender: FDA-Public Use
  Company Number: 2021A807011

PATIENT
  Age: 2382 Week
  Sex: Male

DRUGS (2)
  1. LYNPARZA [Suspect]
     Active Substance: OLAPARIB
     Indication: Brain neoplasm malignant
     Route: 048
     Dates: start: 20210420, end: 20211108
  2. LYNPARZA [Suspect]
     Active Substance: OLAPARIB
     Indication: Hepatitis B
     Route: 048
     Dates: start: 20210420, end: 20211108

REACTIONS (1)
  - Death [Fatal]

NARRATIVE: CASE EVENT DATE: 20211108
